FAERS Safety Report 5323951-2 (Version None)
Quarter: 2007Q2

REPORT INFORMATION
  Report Type: 
  Country: None (occurrence: None)
  Receive Date: 20070509
  Receipt Date: 20070509
  Transmission Date: 20071010
  Serious: Yes (Hospitalization)
  Sender: FDA-Public Use
  Company Number: None

PATIENT
  Sex: Female
  Weight: 64.8644 kg

DRUGS (7)
  1. CETUXIMAB [Suspect]
     Indication: PANCREATIC CARCINOMA
     Dosage: 680MG EVERY 2 WEEKS IV
     Route: 042
     Dates: start: 20061011
  2. GEMCITABINE [Suspect]
     Indication: PANCREATIC CARCINOMA
     Dosage: 1700 MG EVERY 2 WEEKS IV
     Route: 042
     Dates: start: 20061011
  3. OXALIPLATIN [Suspect]
     Indication: PANCREATIC CARCINOMA
     Dosage: 170MG EVERY 2 WEEKS IV
     Route: 042
     Dates: start: 20061012
  4. PAXIL [Concomitant]
  5. OXYCONTIN [Concomitant]
  6. PREDNISONE TAB [Concomitant]
  7. LORTAB [Concomitant]

REACTIONS (6)
  - BRAIN NEOPLASM [None]
  - CENTRAL NERVOUS SYSTEM INFECTION [None]
  - HEADACHE [None]
  - NAUSEA [None]
  - NUCLEAR MAGNETIC RESONANCE IMAGING BRAIN ABNORMAL [None]
  - PYREXIA [None]
